FAERS Safety Report 10950454 (Version 1)
Quarter: 2015Q1

REPORT INFORMATION
  Report Type: Spontaneous
  Country: US (occurrence: None)
  Receive Date: 20150323
  Receipt Date: 20150323
  Transmission Date: 20150721
  Serious: No
  Sender: FDA-Public Use
  Company Number: None

PATIENT
  Age: 31 Year
  Sex: Female
  Weight: 113.4 kg

DRUGS (1)
  1. NEXPLANON [Suspect]
     Active Substance: ETONOGESTREL
     Indication: CONTRACEPTION
     Dates: start: 20130828, end: 20150319

REACTIONS (4)
  - Migraine [None]
  - Fatigue [None]
  - Nausea [None]
  - Food aversion [None]

NARRATIVE: CASE EVENT DATE: 20150321
